FAERS Safety Report 11326677 (Version 1)
Quarter: 2015Q3

REPORT INFORMATION
  Report Type: Spontaneous
  Country: PE (occurrence: PE)
  Receive Date: 20150731
  Receipt Date: 20150731
  Transmission Date: 20151125
  Serious: Yes (Other)
  Sender: FDA-Public Use
  Company Number: PE-SUN PHARMACEUTICAL INDUSTRIES LTD-2015RR-100719

PATIENT

DRUGS (6)
  1. DOXORUBICIN [Suspect]
     Active Substance: DOXORUBICIN
     Indication: BREAST CANCER
     Dosage: 3 CYCLES+2 CYCLES
     Route: 065
  2. CYCLOPHOSPHAMIDE. [Suspect]
     Active Substance: CYCLOPHOSPHAMIDE
     Indication: BREAST CANCER
     Dosage: 3 CYCLES+2 CYCLES
     Route: 065
  3. FLUOROURACIL. [Suspect]
     Active Substance: FLUOROURACIL
     Indication: BREAST CANCER
     Dosage: 3 CYCLES+2 CYCLES
     Route: 065
  4. IXABEPILONE [Suspect]
     Active Substance: IXABEPILONE
     Indication: BREAST CANCER
     Dosage: 40 MG/M2, FOR 14 DAYS, EVERY 21 DAYS, FOR 18 CYCLES
     Route: 065
     Dates: start: 200405, end: 200508
  5. PACLITAXEL. [Suspect]
     Active Substance: PACLITAXEL
     Indication: BREAST CANCER
     Dosage: WEEKLY
     Route: 065
  6. CAPECITABINE. [Suspect]
     Active Substance: CAPECITABINE
     Indication: BREAST CANCER
     Dosage: 1 MG/M2, BID, FOR 14 DAYS EVERY 21 DAYS, FOR 18 CYCLES
     Route: 065
     Dates: start: 200405, end: 200508

REACTIONS (5)
  - Bone lesion [Unknown]
  - Palmar-plantar erythrodysaesthesia syndrome [Unknown]
  - Drug resistance [Unknown]
  - Peripheral sensory neuropathy [Unknown]
  - Humerus fracture [Unknown]
